FAERS Safety Report 7967551-4 (Version None)
Quarter: 2011Q4

REPORT INFORMATION
  Report Type: 
  Country: None (occurrence: None)
  Receive Date: 20111209
  Receipt Date: 20111202
  Transmission Date: 20120403
  Serious: Yes (Hospitalization)
  Sender: FDA-Public Use
  Company Number: DE-UCBSA-046992

PATIENT
  Age: 59 Year
  Sex: Female
  Weight: 65 kg

DRUGS (7)
  1. FOLIC ACID [Concomitant]
     Indication: PROPHYLAXIS
     Route: 048
     Dates: start: 20041110
  2. PREDNISOLONE [Concomitant]
     Indication: RHEUMATOID ARTHRITIS
     Route: 048
     Dates: start: 20040101
  3. METHOTREXATE [Concomitant]
     Indication: RHEUMATOID ARTHRITIS
     Route: 058
     Dates: start: 20100628
  4. CALCILAC [Concomitant]
     Indication: OSTEOPOROSIS
     Dosage: DOSE:2X1. FREQ:DAILY
     Route: 048
     Dates: start: 20040401
  5. PROLIA [Concomitant]
     Indication: OSTEOPOROSIS
     Route: 058
     Dates: start: 20110316
  6. DEKRISTOL [Concomitant]
     Indication: OSTEOPOROSIS
     Route: 048
     Dates: start: 20101207
  7. CERTOLIZUMAB PEGOL [Suspect]
     Indication: RHEUMATOID ARTHRITIS
     Dosage: NO. OF DOSES RECEIVED:16
     Route: 058
     Dates: start: 20110520, end: 20111109

REACTIONS (1)
  - RETINAL DETACHMENT [None]
